FAERS Safety Report 8216758-X (Version None)
Quarter: 2012Q1

REPORT INFORMATION
  Report Type: 
  Country: None (occurrence: None)
  Receive Date: 20120316
  Receipt Date: 20120313
  Transmission Date: 20120608
  Serious: Yes (Hospitalization)
  Sender: FDA-Public Use
  Company Number: US-ROCHE-654570

PATIENT
  Sex: Female
  Weight: 96 kg

DRUGS (14)
  1. HERCEPTIN [Suspect]
     Indication: BREAST CANCER
     Dosage: DOSE LEVEL: 6 MG/KG. LAST DOSE PRIOR TO SAE: 17 AUGUST 2009. FORM: VIALS
     Route: 042
  2. DOCETAXEL [Suspect]
     Indication: BREAST CANCER
     Dosage: DOSE LEVEL: 75 MG/M2. LAST DOSE PRIOR TO SAE: 17 AUGUST 2009. DOSE FORM: VIALS
     Route: 042
  3. AVASTIN [Suspect]
     Indication: BREAST CANCER
     Dosage: FORM: VIALS; DOSE LEVEL: 15 MG/KG; LAST DOSE PRIOR TO SAE: 17 AUGUST 2009
     Route: 042
  4. MILK OF MAGNESIA TAB [Concomitant]
  5. MAALOX PRODUCT NOS [Concomitant]
  6. HYDROCHLOROTHIAZIDE [Concomitant]
  7. ATIVAN [Concomitant]
  8. PROCHLORPERAZINE [Concomitant]
  9. NEXIUM [Concomitant]
  10. CARBOPLATIN [Suspect]
     Indication: BREAST CANCER
     Dosage: DOSE LEVEL: 06 AUC. DOSE FORM: VIALS. LAST DOSE PRIOR TO SAE: 17 AUGUST 2009
     Route: 042
  11. CARBOPLATIN [Suspect]
     Route: 042
  12. VALSARTAN [Concomitant]
  13. COLACE [Concomitant]
  14. LUNESTA [Concomitant]

REACTIONS (1)
  - GASTRITIS [None]
